FAERS Safety Report 11353321 (Version 1)
Quarter: 2015Q3

REPORT INFORMATION
  Report Type: Spontaneous
  Country: CN (occurrence: CN)
  Receive Date: 20150807
  Receipt Date: 20150807
  Transmission Date: 20151125
  Serious: Yes (Death, Other)
  Sender: FDA-Public Use
  Company Number: CN-GLAXOSMITHKLINE-CN2015GSK108901

PATIENT
  Age: 73 Year

DRUGS (1)
  1. CEFUROXIME. [Suspect]
     Active Substance: CEFUROXIME

REACTIONS (1)
  - Anaphylactic shock [Fatal]
